FAERS Safety Report 23923957 (Version 3)
Quarter: 2024Q3

REPORT INFORMATION
  Report Type: Spontaneous
  Country: AU (occurrence: AU)
  Receive Date: 20240531
  Receipt Date: 20240716
  Transmission Date: 20241017
  Serious: Yes (Other)
  Sender: Haleon PLC
  Company Number: AU-HALEON-2178565

PATIENT
  Age: 1 Month
  Sex: Female

DRUGS (1)
  1. ACETAMINOPHEN [Suspect]
     Active Substance: ACETAMINOPHEN
     Indication: Product used for unknown indication
     Dosage: EXPDATE:20250228EXPDATE:20250228

REACTIONS (6)
  - Choking [Unknown]
  - Foaming at mouth [Unknown]
  - Hypotonia [Unknown]
  - Cyanosis [Unknown]
  - Dyspnoea [Unknown]
  - Product complaint [Unknown]
